FAERS Safety Report 9133140 (Version 2)
Quarter: 2013Q1

REPORT INFORMATION
  Report Type: Spontaneous
  Country: JP (occurrence: JP)
  Receive Date: 20130301
  Receipt Date: 20130306
  Transmission Date: 20140127
  Serious: Yes (Hospitalization, Other)
  Sender: FDA-Public Use
  Company Number: DE-ASTRAZENECA-2013SE12521

PATIENT
  Age: 65 Year
  Sex: Male

DRUGS (10)
  1. NEXIUM [Suspect]
     Dosage: FOR 42 DAYS
     Route: 048
     Dates: start: 20130110
  2. NEXIUM [Suspect]
     Route: 048
     Dates: start: 20130221
  3. LIVALO [Concomitant]
     Dosage: DOSE UNKNOWN
     Route: 065
  4. PLAVIX [Concomitant]
     Dosage: DOSE UNKNOWN
     Route: 065
  5. BAYASPIRIN [Concomitant]
     Dosage: DOSE UNKNOWN
     Route: 065
  6. COVERSYL [Concomitant]
     Dosage: DOSE UNKNOWN
     Route: 065
  7. CALBLOCK [Concomitant]
     Dosage: DOSE UNKNOWN
     Route: 065
  8. EQUA [Concomitant]
     Dosage: DOSE UNKNOWN
     Route: 065
  9. AMARYL [Concomitant]
     Dosage: DOSE UNKNOWN
     Route: 065
  10. ARTIST [Concomitant]
     Dosage: DOSE UNKNOWN
     Route: 065

REACTIONS (1)
  - Blindness transient [Recovering/Resolving]
